FAERS Safety Report 9904471 (Version 2)
Quarter: 2014Q1

REPORT INFORMATION
  Report Type: Spontaneous
  Country: FR (occurrence: FR)
  Receive Date: 20140218
  Receipt Date: 20140218
  Transmission Date: 20141002
  Serious: Yes (Hospitalization, Other)
  Sender: FDA-Public Use
  Company Number: FR-JNJFOC-20131012507

PATIENT
  Age: 64 Year
  Sex: Male

DRUGS (2)
  1. DOXORUBICIN HYDROCHLORIDE (CAELYX) [Suspect]
     Indication: T-CELL LYMPHOMA
     Dosage: 4TH COURSE
     Route: 042
     Dates: start: 201310, end: 201312
  2. DOXORUBICIN HYDROCHLORIDE (CAELYX) [Suspect]
     Indication: T-CELL LYMPHOMA
     Dosage: 4TH COURSE
     Route: 042
     Dates: start: 20130902

REACTIONS (4)
  - Palmar-plantar erythrodysaesthesia syndrome [Unknown]
  - Malignant neoplasm progression [Unknown]
  - Scar [Recovering/Resolving]
  - Eczema [Unknown]
